FAERS Safety Report 7812064-3 (Version None)
Quarter: 2011Q4

REPORT INFORMATION
  Report Type: 
  Country: None (occurrence: None)
  Receive Date: 20111011
  Receipt Date: 20110918
  Transmission Date: 20120403
  Serious: Yes (Hospitalization, Other)
  Sender: FDA-Public Use
  Company Number: NSR_00283-2011

PATIENT
  Age: 23 Year
  Sex: Male

DRUGS (4)
  1. LAMOTRIGINE [Suspect]
     Indication: PRODUCT USED FOR UNKNOWN INDICATION
     Dosage: (25 MG QD)
  2. LITHIUM CARBONATE [Concomitant]
  3. RISPERIDONE [Concomitant]
  4. TRIHEXYPHENIDYL HCL [Concomitant]

REACTIONS (2)
  - BIPOLAR DISORDER [None]
  - MANIA [None]
